FAERS Safety Report 17833990 (Version 4)
Quarter: 2023Q1

REPORT INFORMATION
  Report Type: Spontaneous
  Country: US (occurrence: US)
  Receive Date: 20200528
  Receipt Date: 20230317
  Transmission Date: 20230418
  Serious: No
  Sender: FDA-Public Use
  Company Number: US-BIOGEN-2020BI00876894

PATIENT
  Sex: Female

DRUGS (1)
  1. TYSABRI [Suspect]
     Active Substance: NATALIZUMAB
     Indication: Multiple sclerosis
     Route: 050
     Dates: start: 20150507

REACTIONS (4)
  - Feeling abnormal [Unknown]
  - Poor venous access [Unknown]
  - Influenza like illness [Recovered/Resolved with Sequelae]
  - Nausea [Recovered/Resolved with Sequelae]
